FAERS Safety Report 10241892 (Version 1)
Quarter: 2014Q2

REPORT INFORMATION
  Report Type: Report from Study
  Country: JP (occurrence: JP)
  Receive Date: 20140617
  Receipt Date: 20140617
  Transmission Date: 20141212
  Serious: Yes (Hospitalization)
  Sender: FDA-Public Use
  Company Number: JP-GLAXOSMITHKLINE-B0949267A

PATIENT
  Age: 48 Year
  Sex: Female
  Weight: 53 kg

DRUGS (16)
  1. GSK1120212 [Suspect]
     Indication: MALIGNANT MELANOMA
     Dosage: 2MG PER DAY
     Route: 048
     Dates: start: 20131001, end: 20131127
  2. GSK1120212 [Suspect]
     Indication: MALIGNANT MELANOMA
     Dosage: 2MG PER DAY
     Route: 048
     Dates: start: 20131206, end: 20140115
  3. GSK1120212 [Suspect]
     Indication: MALIGNANT MELANOMA
     Dosage: 1.5MG PER DAY
     Route: 048
     Dates: start: 20140116, end: 20140514
  4. GSK2118436 [Suspect]
     Indication: MALIGNANT MELANOMA
     Dosage: 150MG PER DAY
     Route: 048
     Dates: start: 20131001, end: 20131001
  5. GSK2118436 [Suspect]
     Indication: MALIGNANT MELANOMA
     Dosage: 150MG TWICE PER DAY
     Route: 048
     Dates: start: 20131002, end: 20131127
  6. GSK2118436 [Suspect]
     Indication: MALIGNANT MELANOMA
     Dosage: 150MG TWICE PER DAY
     Route: 048
     Dates: start: 20131206, end: 20140115
  7. GSK2118436 [Suspect]
     Indication: MALIGNANT MELANOMA
     Dosage: 100MG TWICE PER DAY
     Route: 048
     Dates: start: 20140116, end: 20140514
  8. MS CONTIN [Concomitant]
     Indication: CANCER PAIN
     Dosage: 10MG TWICE PER DAY
     Route: 048
  9. LOXOPROFEN [Concomitant]
     Indication: CANCER PAIN
     Dosage: 60MG THREE TIMES PER DAY
     Route: 048
  10. TEPRENONE [Concomitant]
     Indication: GASTRITIS PROPHYLAXIS
     Route: 048
  11. MAGMITT [Concomitant]
     Indication: CONSTIPATION PROPHYLAXIS
     Route: 048
  12. PURSENNID [Concomitant]
     Indication: CONSTIPATION PROPHYLAXIS
     Dosage: 10MG TWICE PER DAY
     Route: 048
  13. UREPEARL [Concomitant]
     Indication: DRY SKIN
     Route: 061
  14. RESTAMIN [Concomitant]
     Indication: PRURITUS
     Route: 061
  15. BESOFTEN [Concomitant]
     Indication: PRURITUS
     Route: 061
  16. DERMOVATE [Concomitant]
     Indication: RASH
     Route: 061

REACTIONS (1)
  - Pneumonitis [Recovered/Resolved]
